FAERS Safety Report 14383100 (Version 1)
Quarter: 2018Q1

REPORT INFORMATION
  Report Type: Report from Study
  Country: US (occurrence: US)
  Receive Date: 20180115
  Receipt Date: 20180115
  Transmission Date: 20180509
  Serious: Yes (Other)
  Sender: FDA-Public Use
  Company Number: US-ROCHE-2051017

PATIENT
  Age: 1 Year
  Sex: Female
  Weight: 19 kg

DRUGS (2)
  1. NUTROPIN AQ [Suspect]
     Active Substance: SOMATROPIN
     Indication: TURNER^S SYNDROME
     Dosage: NUTROPIN AQ 10 MG PEN
     Route: 058
     Dates: start: 200803
  2. NUTROPIN AQ [Suspect]
     Active Substance: SOMATROPIN
     Route: 058

REACTIONS (9)
  - Otitis media acute [Not Recovered/Not Resolved]
  - Headache [Unknown]
  - Oropharyngeal pain [Recovered/Resolved]
  - Abnormal weight gain [Unknown]
  - Cardiac murmur [Unknown]
  - Middle ear effusion [Not Recovered/Not Resolved]
  - Snoring [Recovered/Resolved]
  - Diarrhoea [Recovered/Resolved]
  - Blood thyroid stimulating hormone increased [Unknown]

NARRATIVE: CASE EVENT DATE: 200803
